FAERS Safety Report 25492751 (Version 2)
Quarter: 2025Q3

REPORT INFORMATION
  Report Type: Spontaneous
  Country: EU (occurrence: EU)
  Receive Date: 20250630
  Receipt Date: 20250721
  Transmission Date: 20251021
  Serious: Yes (Death, Hospitalization, Other)
  Sender: GENMAB
  Company Number: EU-ABBVIE-6347787

PATIENT
  Age: 86 Year
  Sex: Male
  Weight: 74 kg

DRUGS (1)
  1. EPCORITAMAB [Suspect]
     Active Substance: EPCORITAMAB
     Indication: Diffuse large B-cell lymphoma
     Dosage: 78 MILLIGRAM, WEEKLY
     Route: 058
     Dates: start: 20250108, end: 20250123

REACTIONS (10)
  - Lymphoma [Fatal]
  - Thrombocytopenia [Not Recovered/Not Resolved]
  - Skin bacterial infection [Recovering/Resolving]
  - General physical health deterioration [Recovering/Resolving]
  - C-reactive protein increased [Recovering/Resolving]
  - Diffuse large B-cell lymphoma [Not Recovered/Not Resolved]
  - Skin burning sensation [Recovering/Resolving]
  - Pruritus [Recovering/Resolving]
  - Erythema [Recovering/Resolving]
  - Blood lactate dehydrogenase increased [Not Recovered/Not Resolved]

NARRATIVE: CASE EVENT DATE: 20250128
